FAERS Safety Report 12272549 (Version 1)
Quarter: 2016Q2

REPORT INFORMATION
  Report Type: Report from Study
  Country: CO (occurrence: CO)
  Receive Date: 20160415
  Receipt Date: 20160415
  Transmission Date: 20160815
  Serious: Yes (Hospitalization, Other)
  Sender: FDA-Public Use
  Company Number: CO-JNJFOC-20160412853

PATIENT
  Age: 21 Year
  Sex: Male
  Weight: 89 kg

DRUGS (1)
  1. RISPERDAL CONSTA [Suspect]
     Active Substance: RISPERIDONE
     Indication: SCHIZOPHRENIA
     Route: 030
     Dates: start: 20160408

REACTIONS (8)
  - Blindness [Unknown]
  - Hypotension [Unknown]
  - Dizziness [Unknown]
  - Hypertension [Unknown]
  - Fall [Unknown]
  - Headache [Unknown]
  - Hyperhidrosis [Unknown]
  - Peripheral coldness [Unknown]

NARRATIVE: CASE EVENT DATE: 20160408
